FAERS Safety Report 10040667 (Version 1)
Quarter: 2014Q1

REPORT INFORMATION
  Report Type: Spontaneous
  Country: US (occurrence: None)
  Receive Date: 20140326
  Receipt Date: 20140326
  Transmission Date: 20141002
  Serious: Yes (Disabling, Other)
  Sender: FDA-Public Use
  Company Number: None

PATIENT
  Age: 56 Year
  Sex: Female
  Weight: 59.88 kg

DRUGS (1)
  1. ATORVASTATIN [Suspect]
     Indication: BLOOD CHOLESTEROL INCREASED
     Dosage: 1 PILL
     Route: 048
     Dates: start: 20140127, end: 20140223

REACTIONS (15)
  - Quality of life decreased [None]
  - Palpitations [None]
  - Dyspnoea [None]
  - Myalgia [None]
  - Arthralgia [None]
  - Fatigue [None]
  - Mental impairment [None]
  - Sleep disorder [None]
  - Abdominal discomfort [None]
  - Discomfort [None]
  - Suffocation feeling [None]
  - Drug ineffective [None]
  - Renal impairment [None]
  - Exercise tolerance decreased [None]
  - Decreased activity [None]
